FAERS Safety Report 8432282-3 (Version None)
Quarter: 2012Q2

REPORT INFORMATION
  Report Type: 
  Country: None (occurrence: None)
  Receive Date: 20120607
  Receipt Date: 20120522
  Transmission Date: 20120825
  Serious: Yes (Other)
  Sender: FDA-Public Use
  Company Number: JPI-P-021566

PATIENT
  Age: 57 Year
  Sex: Female

DRUGS (4)
  1. ENABLEX [Concomitant]
  2. XYREM [Suspect]
     Indication: CATAPLEXY
     Route: 048
     Dates: start: 20120501
  3. XYREM [Suspect]
     Indication: CATAPLEXY
     Route: 048
     Dates: start: 20071008
  4. XYREM [Suspect]
     Indication: CATAPLEXY
     Route: 048
     Dates: end: 20120501

REACTIONS (1)
  - OSTEOPOROSIS [None]
